FAERS Safety Report 11925568 (Version 1)
Quarter: 2016Q1

REPORT INFORMATION
  Report Type: Spontaneous
  Country: IT (occurrence: IT)
  Receive Date: 20160118
  Receipt Date: 20160118
  Transmission Date: 20160526
  Serious: Yes (Other)
  Sender: FDA-Public Use
  Company Number: IT-ELI_LILLY_AND_COMPANY-IT201512003680

PATIENT
  Age: 71 Year
  Sex: Male

DRUGS (8)
  1. LANTUS [Suspect]
     Active Substance: INSULIN GLARGINE
     Indication: TYPE 2 DIABETES MELLITUS
     Dosage: 10 IU, QD
     Route: 058
     Dates: start: 20150101, end: 20150518
  2. ESKIM [Concomitant]
     Active Substance: OMEGA-3 FATTY ACIDS
     Dosage: 3 DF, UNK
     Route: 048
  3. PEPTAZOL                           /01159001/ [Concomitant]
  4. HUMALOG [Suspect]
     Active Substance: INSULIN LISPRO
     Dosage: 5 IU, UNKNOWN
     Route: 058
  5. TICLOPIDINE [Concomitant]
     Active Substance: TICLOPIDINE
     Dosage: 500 MG, UNK
     Route: 048
  6. NORVASC [Concomitant]
     Active Substance: AMLODIPINE BESYLATE
  7. HUMALOG [Suspect]
     Active Substance: INSULIN LISPRO
     Indication: TYPE 2 DIABETES MELLITUS
     Dosage: UNK, UNKNOWN
     Route: 058
     Dates: start: 20150101, end: 20150518
  8. LANTUS [Suspect]
     Active Substance: INSULIN GLARGINE
     Dosage: 5 IU, UNKNOWN
     Route: 058

REACTIONS (5)
  - Blood creatinine increased [Unknown]
  - Hypoglycaemia [Recovering/Resolving]
  - Blood creatine phosphokinase increased [Unknown]
  - Blood pressure increased [Unknown]
  - Wrong drug administered [Unknown]

NARRATIVE: CASE EVENT DATE: 20150518
